FAERS Safety Report 9123111 (Version 2)
Quarter: 2013Q1

REPORT INFORMATION
  Report Type: Spontaneous
  Country: JP (occurrence: JP)
  Receive Date: 20130227
  Receipt Date: 20130311
  Transmission Date: 20140127
  Serious: No
  Sender: FDA-Public Use
  Company Number: JP-JNJFOC-20130210243

PATIENT
  Age: 89 Year
  Sex: Male
  Weight: 54 kg

DRUGS (3)
  1. RISPERDAL [Suspect]
     Indication: DEMENTIA WITH LEWY BODIES
     Route: 048
  2. DONEPEZIL [Suspect]
     Indication: DEMENTIA WITH LEWY BODIES
     Route: 048
  3. ALL OTHER THERAPEUTIC PRODUCTS [Suspect]
     Indication: PRODUCT USED FOR UNKNOWN INDICATION
     Route: 065

REACTIONS (1)
  - Musculoskeletal stiffness [Unknown]
